FAERS Safety Report 19613895 (Version 1)
Quarter: 2021Q3

REPORT INFORMATION
  Report Type: Spontaneous
  Country: US (occurrence: US)
  Receive Date: 20210727
  Receipt Date: 20210727
  Transmission Date: 20211014
  Serious: Yes (Other)
  Sender: FDA-Public Use
  Company Number: US-ALVOGEN-2021-ALVOGEN-117257

PATIENT
  Age: 17 Year
  Sex: Female
  Weight: 109.32 kg

DRUGS (1)
  1. MINOCYCLINE [Suspect]
     Active Substance: MINOCYCLINE HYDROCHLORIDE
     Indication: ACNE
     Dosage: 100 MG DAILY FOR THE LAST 3 MONTHS

REACTIONS (2)
  - Idiopathic intracranial hypertension [Recovered/Resolved]
  - VIth nerve paralysis [Recovered/Resolved]
